FAERS Safety Report 9259341 (Version 1)
Quarter: 2013Q2

REPORT INFORMATION
  Report Type: Report from Study
  Country: US (occurrence: US)
  Receive Date: 20130427
  Receipt Date: 20130427
  Transmission Date: 20140414
  Serious: Yes (Hospitalization)
  Sender: FDA-Public Use
  Company Number: US-ROCHE-1153125

PATIENT
  Age: 46 Year
  Sex: Female
  Weight: 106.24 kg

DRUGS (3)
  1. CAPECITABINE [Suspect]
     Indication: COLORECTAL CANCER STAGE IV
     Route: 048
     Dates: start: 20120927
  2. OXYCODONE [Concomitant]
     Indication: PAIN
  3. LUNESTA [Concomitant]
     Indication: INSOMNIA

REACTIONS (5)
  - Intestinal obstruction [Not Recovered/Not Resolved]
  - Insomnia [Not Recovered/Not Resolved]
  - Nausea [Not Recovered/Not Resolved]
  - Vomiting [Not Recovered/Not Resolved]
  - Nausea [Recovered/Resolved]
